FAERS Safety Report 21570245 (Version 2)
Quarter: 2022Q4

REPORT INFORMATION
  Report Type: Spontaneous
  Country: US (occurrence: US)
  Receive Date: 20221109
  Receipt Date: 20221123
  Transmission Date: 20230112
  Serious: No
  Sender: FDA-Public Use
  Company Number: US-JNJFOC-20221047745

PATIENT
  Age: 52 Year
  Sex: Female

DRUGS (2)
  1. STELARA [Suspect]
     Active Substance: USTEKINUMAB
     Indication: Psoriasis
     Route: 058
     Dates: start: 2020
  2. STELARA [Suspect]
     Active Substance: USTEKINUMAB

REACTIONS (5)
  - Product quality issue [Unknown]
  - Product dose omission issue [Unknown]
  - Product storage error [Unknown]
  - Self-medication [Unknown]
  - Product use issue [Unknown]

NARRATIVE: CASE EVENT DATE: 20221021
